FAERS Safety Report 20815775 (Version 2)
Quarter: 2022Q3

REPORT INFORMATION
  Report Type: Report from Study
  Country: FR (occurrence: FR)
  Receive Date: 20220511
  Receipt Date: 20220707
  Transmission Date: 20221026
  Serious: No
  Sender: FDA-Public Use
  Company Number: FR-GILEAD-2022-0581228

PATIENT
  Sex: Female
  Weight: 63 kg

DRUGS (4)
  1. SACITUZUMAB GOVITECAN [Suspect]
     Active Substance: SACITUZUMAB GOVITECAN
     Indication: Triple negative breast cancer
     Dosage: 10 MG/KG, C1D1 AND C1D8
     Route: 065
     Dates: start: 20211228, end: 20220104
  2. SACITUZUMAB GOVITECAN [Suspect]
     Active Substance: SACITUZUMAB GOVITECAN
     Dosage: 10 MG/KG ON C2D1 AND C2D8
     Route: 065
     Dates: start: 20220118, end: 20220125
  3. SACITUZUMAB GOVITECAN [Suspect]
     Active Substance: SACITUZUMAB GOVITECAN
     Dosage: UNK
     Route: 065
     Dates: end: 20220228
  4. SACITUZUMAB GOVITECAN [Suspect]
     Active Substance: SACITUZUMAB GOVITECAN
     Dosage: 10 MG/KG ON C3D1 AND C3D8
     Route: 065
     Dates: start: 20220208, end: 20220215

REACTIONS (1)
  - Pleural effusion [Unknown]
